FAERS Safety Report 25307639 (Version 1)
Quarter: 2025Q2

REPORT INFORMATION
  Report Type: Spontaneous
  Country: US (occurrence: US)
  Receive Date: 20250513
  Receipt Date: 20250513
  Transmission Date: 20250717
  Serious: Yes (Other)
  Sender: Norvium Bioscience
  Company Number: US-Norvium Bioscience LLC-080142

PATIENT
  Age: 56 Year

DRUGS (2)
  1. SPIRONOLACTONE [Suspect]
     Active Substance: SPIRONOLACTONE
     Indication: Gender reassignment therapy
  2. ESTROGENS [Suspect]
     Active Substance: ESTROGENS
     Indication: Gender reassignment therapy

REACTIONS (2)
  - Thrombosis [Unknown]
  - Hypotension [Unknown]
